FAERS Safety Report 6663281-X (Version None)
Quarter: 2010Q1

REPORT INFORMATION
  Report Type: 
  Country: None (occurrence: None)
  Receive Date: 20100331
  Receipt Date: 20100331
  Transmission Date: 20100710
  Serious: Yes (Hospitalization)
  Sender: FDA-Public Use
  Company Number: None

PATIENT
  Age: 56 Year
  Sex: Female
  Weight: 59.5 kg

DRUGS (2)
  1. SORAFENIB [Suspect]
     Dosage: 400 MG BID PO
     Route: 048
     Dates: start: 20100203, end: 20100215
  2. ERLOTINIB [Suspect]
     Dosage: 150 MG QD PO
     Route: 048
     Dates: start: 20100203, end: 20100215

REACTIONS (5)
  - CHOLANGITIS [None]
  - CONFUSIONAL STATE [None]
  - LIVER ABSCESS [None]
  - MENTAL STATUS CHANGES [None]
  - SEPTIC SHOCK [None]
